FAERS Safety Report 8808641 (Version 1)
Quarter: 2012Q4

REPORT INFORMATION
  Report Type: Spontaneous
  Country: US (occurrence: None)
  Receive Date: 20120919
  Receipt Date: 20120919
  Transmission Date: 20130627
  Serious: Yes (Hospitalization)
  Sender: FDA-Public Use
  Company Number: 1416651

PATIENT
  Age: 13 Year
  Sex: Female

DRUGS (12)
  1. LIPOSYN [Suspect]
     Indication: DRUG OVERDOSE
     Dosage: 1.5 MG/KG, INTRAVENOUS BOLUS
     Route: 040
  2. LIPOSYN [Suspect]
     Indication: DRUG OVERDOSE
     Dosage: 0.25 MG/KG/MINUTE INTRAVENOUS DRIP
     Route: 041
  3. MIDAZOLAM [Concomitant]
  4. FENTANYL [Concomitant]
  5. SODIUM BICARBONATE [Concomitant]
  6. LORAZEPAM [Suspect]
  7. PHENOBARBITAL [Concomitant]
  8. EPINEPHRINE [Concomitant]
  9. MAGNESIUM SULFATE [Concomitant]
  10. LIDOCAINE [Concomitant]
  11. POTASSIUM [Concomitant]
  12. DEXTROSE [Concomitant]

REACTIONS (12)
  - Pancreatitis [None]
  - Hypertriglyceridaemia [None]
  - Arrhythmia [None]
  - Cardiac arrest [None]
  - Torsade de pointes [None]
  - Sinus tachycardia [None]
  - Hypotension [None]
  - Weight decreased [None]
  - Asthenia [None]
  - Pneumonia aspiration [None]
  - Pneumonia staphylococcal [None]
  - Thrombophlebitis superficial [None]
